FAERS Safety Report 11314653 (Version 2)
Quarter: 2016Q1

REPORT INFORMATION
  Report Type: Report from Study
  Country: KR (occurrence: KR)
  Receive Date: 20150727
  Receipt Date: 20160219
  Transmission Date: 20160525
  Serious: Yes (Hospitalization)
  Sender: FDA-Public Use
  Company Number: KR-EISAI MEDICAL RESEARCH-EC-2015-008877

PATIENT
  Sex: Female
  Weight: 54 kg

DRUGS (9)
  1. ENTELON [Concomitant]
  2. LYRICA [Concomitant]
     Active Substance: PREGABALIN
  3. CURAN [Concomitant]
  4. PARAMACET [Concomitant]
     Active Substance: ACETAMINOPHEN\TRAMADOL
  5. DUPHALAC [Concomitant]
     Active Substance: LACTULOSE
  6. TARGIN PR [Concomitant]
  7. ASPIRIN. [Concomitant]
     Active Substance: ASPIRIN
  8. MAGMIL [Concomitant]
     Active Substance: MAGNESIUM HYDROXIDE
  9. HALAVEN [Suspect]
     Active Substance: ERIBULIN MESYLATE
     Indication: BREAST CANCER METASTATIC
     Route: 041
     Dates: start: 20150624, end: 20150724

REACTIONS (1)
  - Pyrexia [Recovered/Resolved]

NARRATIVE: CASE EVENT DATE: 20150625
